FAERS Safety Report 6191409-7 (Version None)
Quarter: 2009Q2

REPORT INFORMATION
  Report Type: 
  Country: None (occurrence: None)
  Receive Date: 20090515
  Receipt Date: 20090505
  Transmission Date: 20091009
  Serious: Yes (Other)
  Sender: FDA-Public Use
  Company Number: DE-TEVA-194211USA

PATIENT
  Sex: Female

DRUGS (2)
  1. NALTREXONE HYDROCHLORIDE [Suspect]
  2. QUETIAPINE FUMARATE [Concomitant]
     Dates: start: 20090201

REACTIONS (1)
  - PARAESTHESIA [None]
